FAERS Safety Report 7542899-6 (Version None)
Quarter: 2011Q2

REPORT INFORMATION
  Report Type: 
  Country: None (occurrence: None)
  Receive Date: 20110613
  Receipt Date: 20110530
  Transmission Date: 20111010
  Serious: Yes (Other)
  Sender: FDA-Public Use
  Company Number: PHHY2010DE26102

PATIENT
  Sex: Female
  Weight: 92 kg

DRUGS (1)
  1. DAFIRO HCT [Suspect]
     Dosage: 1 DF, 10 MG AMLO/160 MG VALS/12.5 MG HYDR
     Route: 048
     Dates: start: 20100201

REACTIONS (9)
  - CHEST DISCOMFORT [None]
  - BLOOD CREATININE INCREASED [None]
  - NAUSEA [None]
  - ABDOMINAL PAIN UPPER [None]
  - BLOOD URIC ACID INCREASED [None]
  - C-REACTIVE PROTEIN INCREASED [None]
  - FATIGUE [None]
  - ENDOMETRIAL HYPERTROPHY [None]
  - UTERINE POLYP [None]
